FAERS Safety Report 5946731-3 (Version None)
Quarter: 2008Q4

REPORT INFORMATION
  Report Type: 
  Country: None (occurrence: None)
  Receive Date: 20081107
  Receipt Date: 20081107
  Transmission Date: 20090506
  Serious: Yes (Life-Threatening)
  Sender: FDA-Public Use
  Company Number: None

PATIENT
  Age: 29 Year
  Sex: Male
  Weight: 99.7913 kg

DRUGS (6)
  1. MIRAPEX [Suspect]
     Indication: RESTLESS LEGS SYNDROME
     Dosage: 0.5MG AT BEDTIME PO
     Route: 048
     Dates: start: 20081104, end: 20081105
  2. PRILOSEC [Concomitant]
  3. GLUCOPHAGE [Concomitant]
  4. NASONEX [Concomitant]
  5. PAXIL [Concomitant]
  6. LORATADINE [Concomitant]

REACTIONS (1)
  - ANAPHYLACTIC REACTION [None]
